FAERS Safety Report 23998805 (Version 1)
Quarter: 2024Q2

REPORT INFORMATION
  Report Type: Spontaneous
  Country: US (occurrence: US)
  Receive Date: 20240621
  Receipt Date: 20240621
  Transmission Date: 20240716
  Serious: No
  Sender: FDA-Public Use
  Company Number: US-TEVA-VS-3207227

PATIENT
  Age: 37 Year
  Sex: Female

DRUGS (1)
  1. VERAPAMIL [Suspect]
     Active Substance: VERAPAMIL HYDROCHLORIDE
     Indication: Henoch-Schonlein purpura
     Route: 065
     Dates: start: 20230818

REACTIONS (4)
  - Hypotension [Unknown]
  - Dizziness [Unknown]
  - Dyspepsia [Unknown]
  - Malaise [Unknown]
